FAERS Safety Report 18236186 (Version 1)
Quarter: 2020Q3

REPORT INFORMATION
  Report Type: Report from Study
  Country: SA (occurrence: SA)
  Receive Date: 20200906
  Receipt Date: 20200906
  Transmission Date: 20201103
  Serious: Yes (Hospitalization, Other)
  Sender: FDA-Public Use
  Company Number: SA-ORIENT PHARMA-000032

PATIENT
  Age: 79 Year
  Sex: Male

DRUGS (2)
  1. CEFTOBIPROL/CEFTOBIPROLBEDOCARIL/CEFTOBIPROLBEDOCARIL?NARTIUM [Concomitant]
     Active Substance: CEFTOBIPROLE
     Indication: STAPHYLOCOCCAL INFECTION
  2. VANCOMYCIN [Suspect]
     Active Substance: VANCOMYCIN
     Indication: STAPHYLOCOCCAL INFECTION

REACTIONS (2)
  - Condition aggravated [Recovered/Resolved]
  - Renal impairment [Recovered/Resolved]
